FAERS Safety Report 4572301-8 (Version None)
Quarter: 2005Q1

REPORT INFORMATION
  Report Type: 
  Country: None (occurrence: None)
  Receive Date: 20050203
  Receipt Date: 20050124
  Transmission Date: 20050727
  Serious: Yes (Hospitalization)
  Sender: FDA-Public Use
  Company Number: 2005CG00189

PATIENT
  Age: 85 Year
  Sex: Female
  Weight: 55 kg

DRUGS (6)
  1. OMEPRAZOLE [Suspect]
     Dosage: 20 MG DAILY PO
     Route: 048
     Dates: start: 20041021, end: 20041109
  2. HALDOL [Suspect]
     Dosage: 1 MG BID PO
     Route: 048
     Dates: start: 20041026, end: 20041109
  3. PIPRAM [Suspect]
     Dosage: 400 MG DAILY PO
     Route: 048
     Dates: end: 20041109
  4. COZAAR [Suspect]
     Dosage: 25 MG DAILY PO
     Route: 048
     Dates: end: 20041109
  5. ZOLPIDEM TARTRATE [Suspect]
     Dosage: 10 MG DAILY PO
     Route: 048
     Dates: start: 20040924, end: 20041109
  6. ARTHROTEC [Suspect]
     Dosage: 50 MG + 0.2 MG BID
     Dates: start: 20041021, end: 20041109

REACTIONS (6)
  - ATRIOVENTRICULAR BLOCK FIRST DEGREE [None]
  - CAROTID BRUIT [None]
  - ELECTROCARDIOGRAM REPOLARISATION ABNORMALITY [None]
  - IATROGENIC INJURY [None]
  - MALAISE [None]
  - SINUS ARRHYTHMIA [None]
